FAERS Safety Report 10558540 (Version 1)
Quarter: 2014Q4

REPORT INFORMATION
  Report Type: Report from Study
  Country: US (occurrence: US)
  Receive Date: 20141031
  Receipt Date: 20141031
  Transmission Date: 20150529
  Serious: Yes (Hospitalization)
  Sender: FDA-Public Use
  Company Number: US-JNJFOC-20141019871

PATIENT
  Sex: Male

DRUGS (1)
  1. OLYSIO [Suspect]
     Active Substance: SIMEPREVIR
     Indication: HEPATITIS C
     Route: 065

REACTIONS (5)
  - Treatment failure [Unknown]
  - International normalised ratio increased [Unknown]
  - Yellow skin [Recovering/Resolving]
  - Ocular icterus [Unknown]
  - Blood bilirubin increased [Unknown]
